FAERS Safety Report 11815020 (Version 1)
Quarter: 2015Q4

REPORT INFORMATION
  Report Type: Spontaneous
  Country: US (occurrence: US)
  Receive Date: 20151209
  Receipt Date: 20151209
  Transmission Date: 20160305
  Serious: No
  Sender: FDA-Public Use
  Company Number: US-SA-2015SA152319

PATIENT
  Age: 83 Year
  Sex: Female

DRUGS (5)
  1. SOLOSTAR [Concomitant]
     Active Substance: DEVICE
     Indication: TYPE 2 DIABETES MELLITUS
     Dates: start: 20150903
  2. NOVOLOG [Concomitant]
     Active Substance: INSULIN ASPART
     Dosage: DOSE:20 UNIT(S)
  3. LANTUS SOLOSTAR [Concomitant]
     Active Substance: INSULIN GLARGINE
     Dosage: FOUR UNITS LESS THAN THE DOSE OF TOUJEO
  4. TOUJEO [Suspect]
     Active Substance: INSULIN GLARGINE
     Indication: TYPE 2 DIABETES MELLITUS
     Dosage: DOSE:38 UNIT(S)
     Route: 065
     Dates: start: 20150903
  5. SOLOSTAR [Concomitant]
     Active Substance: DEVICE

REACTIONS (4)
  - Drug administration error [Unknown]
  - Blood glucose increased [Unknown]
  - Injection site pruritus [Unknown]
  - Urticaria [Unknown]

NARRATIVE: CASE EVENT DATE: 20150928
